FAERS Safety Report 9859296 (Version 2)
Quarter: 2014Q1

REPORT INFORMATION
  Report Type: Spontaneous
  Country: US (occurrence: US)
  Receive Date: 20140131
  Receipt Date: 20140220
  Transmission Date: 20141002
  Serious: No
  Sender: FDA-Public Use
  Company Number: US-PFIZER INC-2014025416

PATIENT
  Age: 58 Year
  Sex: Male

DRUGS (18)
  1. SUTENT [Suspect]
     Indication: RENAL CANCER
     Dosage: 50 MG, DAILY, 28DAYS ON AND 14 DAYS OFF
     Route: 048
     Dates: start: 20130924
  2. AMLODIPINE BESYLATE [Concomitant]
     Dosage: 5 MG (ONE TAB), UNK
     Route: 048
     Dates: start: 20131212
  3. CRESTOR [Concomitant]
     Dosage: 5 MG, UNK
     Route: 048
  4. LEVETIRACETAM [Concomitant]
     Dosage: UNK
  5. SPIRONOLACTONE [Concomitant]
     Dosage: UNK
  6. FLOMAX [Concomitant]
     Dosage: 0.4 MG, UNK
  7. TRAMADOL HYDROCHLORIDE [Concomitant]
     Dosage: UNK
  8. TYLENOL [Concomitant]
     Dosage: UNK
  9. VITAMIN B1 [Concomitant]
     Dosage: UNK
  10. WARFARIN SODIUM [Concomitant]
     Dosage: UNK
  11. RESTORIL [Concomitant]
     Dosage: 15 MG, UNK
     Route: 048
  12. KEPPRA [Concomitant]
     Dosage: 1000 MG, UNK
     Route: 048
  13. VITAMIN D [Concomitant]
     Dosage: 1000 IU, UNK
     Route: 048
  14. TRAMADOL [Concomitant]
     Dosage: 50 MG, UNK
     Route: 048
  15. ALDACTONE [Concomitant]
     Dosage: 25 MG, UNK
     Route: 048
  16. TYLENOL W/CODEINE NO. 3 [Concomitant]
     Dosage: 50 MG (ONE TAB), UNK
     Route: 048
  17. COUMADINE [Concomitant]
     Dosage: 4 MG, UNK
     Route: 048
     Dates: start: 20130808
  18. NORCO [Concomitant]
     Dosage: (5MG-325MG) 1-2 TAB
     Route: 048
     Dates: start: 20130820

REACTIONS (1)
  - Influenza [Recovering/Resolving]
